FAERS Safety Report 24597599 (Version 4)
Quarter: 2025Q4

REPORT INFORMATION
  Report Type: Spontaneous
  Country: US (occurrence: US)
  Receive Date: 20241110
  Receipt Date: 20251111
  Transmission Date: 20260117
  Serious: No
  Sender: SANOFI AVENTIS
  Company Number: US-SA-2024SA311986

PATIENT
  Age: 64 Year
  Sex: Female

DRUGS (4)
  1. KEVZARA [Suspect]
     Active Substance: SARILUMAB
     Indication: Arthropathy
     Dosage: 200 MG, QOW
     Route: 058
     Dates: start: 202409
  2. RINVOQ [Concomitant]
     Active Substance: UPADACITINIB
  3. TERIPARATIDE [Concomitant]
     Active Substance: TERIPARATIDE
  4. ORENCIA [Concomitant]
     Active Substance: ABATACEPT
     Dosage: UNK

REACTIONS (4)
  - Loss of personal independence in daily activities [Unknown]
  - Pain [Unknown]
  - Gait disturbance [Unknown]
  - Product use in unapproved indication [Unknown]

NARRATIVE: CASE EVENT DATE: 20240101
